FAERS Safety Report 7365235-7 (Version None)
Quarter: 2011Q1

REPORT INFORMATION
  Report Type: 
  Country: None (occurrence: None)
  Receive Date: 20110322
  Receipt Date: 20110314
  Transmission Date: 20110831
  Serious: Yes (Hospitalization)
  Sender: FDA-Public Use
  Company Number: US-BIOGENIDEC-2009BI032626

PATIENT
  Age: 48 Year
  Sex: Female
  Weight: 60 kg

DRUGS (18)
  1. FOLIC ACID [Concomitant]
     Route: 048
     Dates: start: 20080717
  2. NYSTATIN SWISH AND SWALLOW [Concomitant]
     Route: 048
     Dates: start: 20090610
  3. SOLU-MEDROL [Concomitant]
     Indication: OPTIC NEURITIS
     Route: 042
  4. TYSABRI [Suspect]
     Indication: MULTIPLE SCLEROSIS
     Route: 042
     Dates: start: 20090311, end: 20091015
  5. GABAPENTIN [Concomitant]
     Route: 048
     Dates: start: 20071221
  6. ZINC [Concomitant]
     Route: 048
     Dates: start: 20080717
  7. TEMAZEPAM [Concomitant]
     Route: 048
     Dates: start: 20090512
  8. FOSAMAX [Concomitant]
     Dates: start: 20080717
  9. VITAMIN A [Concomitant]
     Route: 048
     Dates: start: 20080717
  10. OXYBUTYNIN ER [Concomitant]
     Route: 048
     Dates: start: 20080717
  11. IMITREX [Concomitant]
     Indication: MIGRAINE
     Route: 048
     Dates: start: 20080717
  12. BACLOFEN [Concomitant]
     Route: 048
     Dates: start: 20080114
  13. CALCIUM PLUS VITAMIN D [Concomitant]
     Route: 048
     Dates: start: 20080717
  14. IMODIUM [Concomitant]
     Route: 048
     Dates: start: 20090610
  15. VANCOMYCIN [Concomitant]
     Route: 042
     Dates: start: 20090610
  16. DEPAKOTE [Concomitant]
     Route: 048
     Dates: start: 20090126
  17. MULTI-VITAMIN [Concomitant]
     Route: 048
     Dates: start: 20080717
  18. LOVAZA [Concomitant]
     Route: 048
     Dates: start: 20090610

REACTIONS (2)
  - PYELONEPHRITIS [None]
  - ENTEROBACTER INFECTION [None]
